FAERS Safety Report 16712580 (Version 3)
Quarter: 2019Q4

REPORT INFORMATION
  Report Type: Report from Study
  Country: US (occurrence: US)
  Receive Date: 20190816
  Receipt Date: 20191001
  Transmission Date: 20200122
  Serious: Yes (Death, Hospitalization)
  Sender: FDA-Public Use
  Company Number: US-EXELIXIS-XL18419023067

PATIENT
  Age: 64 Year
  Sex: Male
  Weight: 70.8 kg

DRUGS (14)
  1. FERROUS SULFATE. [Concomitant]
     Active Substance: FERROUS SULFATE
  2. AMLODIPINE [Concomitant]
     Active Substance: AMLODIPINE BESYLATE
  3. FOLIC ACID. [Concomitant]
     Active Substance: FOLIC ACID
  4. POTASSIUM GLUCONATE [Concomitant]
     Active Substance: POTASSIUM GLUCONATE
  5. TAMSULOSIN [Concomitant]
     Active Substance: TAMSULOSIN
  6. XL184 [Suspect]
     Active Substance: CABOZANTINIB
     Indication: COLORECTAL CANCER
     Dosage: 20 MG, QD
     Route: 048
     Dates: start: 20190808
  7. BENZOYL PEROXIDE. [Concomitant]
     Active Substance: BENZOYL PEROXIDE
  8. MICONAZOLE. [Concomitant]
     Active Substance: MICONAZOLE
  9. DURVALUMAB. [Suspect]
     Active Substance: DURVALUMAB
     Indication: COLORECTAL CANCER
     Dosage: 1500 MG, Q4WEEKS
     Route: 042
     Dates: start: 20190808
  10. SIMVASTATIN. [Concomitant]
     Active Substance: SIMVASTATIN
  11. ALBUTEROL. [Concomitant]
     Active Substance: ALBUTEROL
     Indication: DYSPNOEA
  12. CELEBREX [Concomitant]
     Active Substance: CELECOXIB
  13. FINASTERIDE. [Concomitant]
     Active Substance: FINASTERIDE
  14. CLOBETASOL [Concomitant]
     Active Substance: CLOBETASOL

REACTIONS (2)
  - Haematemesis [Unknown]
  - Acute respiratory failure [Fatal]

NARRATIVE: CASE EVENT DATE: 20190809
